FAERS Safety Report 7623299-7 (Version None)
Quarter: 2011Q3

REPORT INFORMATION
  Report Type: 
  Country: None (occurrence: None)
  Receive Date: 20110720
  Receipt Date: 20110715
  Transmission Date: 20111222
  Serious: Yes (Other)
  Sender: FDA-Public Use
  Company Number: DE-PFIZER INC-2011160771

PATIENT
  Age: 37 Year
  Sex: Female

DRUGS (1)
  1. LYRICA [Suspect]
     Indication: DEPRESSED MOOD
     Dosage: 25MG, UNK

REACTIONS (4)
  - DRUG WITHDRAWAL SYNDROME [None]
  - DECREASED APPETITE [None]
  - HOT FLUSH [None]
  - DEPRESSION [None]
